FAERS Safety Report 8429285 (Version 4)
Quarter: 2015Q1

REPORT INFORMATION
  Report Type: Spontaneous
  Country: US (occurrence: None)
  Receive Date: 20120215
  Receipt Date: 20150211
  Transmission Date: 20150721
  Serious: Yes (Other)
  Sender: FDA-Public Use
  Company Number: 1201-008

PATIENT
  Age: 83 Year
  Sex: Male

DRUGS (8)
  1. EYLEA [Suspect]
     Active Substance: AFLIBERCEPT
     Indication: NEOVASCULAR AGE-RELATED MACULAR DEGENERATION
     Dosage: 2 MG, MONTHLY, OS, INTRAOCULAR
     Route: 031
     Dates: start: 20111206, end: 20111206
  2. ATROPINE [Concomitant]
     Active Substance: ATROPINE
  3. LIDOCAINE. [Concomitant]
     Active Substance: LIDOCAINE
  4. POVIDONE-IODINE. [Concomitant]
     Active Substance: POVIDONE-IODINE
  5. DORZOLAMIDE [Concomitant]
     Active Substance: DORZOLAMIDE
  6. PRESERVISION (ASCORBIC ACID, BETACAROTENE, CUPRIC OXIDE, TOCOPHERYL ACETATE, ZINC OXIDE) [Concomitant]
  7. VIGAMOX (MOXIFLOXACIN HYDROCHLORIDE) [Concomitant]
  8. PREDNISOLONE ACETATE. [Concomitant]
     Active Substance: PREDNISOLONE ACETATE

REACTIONS (11)
  - Inflammation [None]
  - Non-infectious endophthalmitis [None]
  - Vitritis [None]
  - Eye disorder [None]
  - Corneal disorder [None]
  - Vitreous disorder [None]
  - Vitreous opacities [None]
  - Mydriasis [None]
  - Endophthalmitis [None]
  - Anterior chamber inflammation [None]
  - Vision blurred [None]

NARRATIVE: CASE EVENT DATE: 20111206
